FAERS Safety Report 7535843-9 (Version None)
Quarter: 2011Q2

REPORT INFORMATION
  Report Type: 
  Country: None (occurrence: None)
  Receive Date: 20110607
  Receipt Date: 20110607
  Transmission Date: 20111010
  Serious: Yes (Life-Threatening, Other)
  Sender: FDA-Public Use
  Company Number: None

PATIENT
  Sex: Female
  Weight: 97.5234 kg

DRUGS (1)
  1. LEVAQUIN [Suspect]
     Indication: SINUSITIS
     Dosage: 500 MG. 1X DAILY PO
     Route: 048
     Dates: start: 20110409, end: 20110416

REACTIONS (15)
  - FEAR [None]
  - FEELING ABNORMAL [None]
  - PALPITATIONS [None]
  - CEREBROVASCULAR ACCIDENT [None]
  - DYSPNOEA [None]
  - ASTHENIA [None]
  - OEDEMA PERIPHERAL [None]
  - DRUG HYPERSENSITIVITY [None]
  - DYSSTASIA [None]
  - JOINT SWELLING [None]
  - NAUSEA [None]
  - MYALGIA [None]
  - SLEEP DISORDER [None]
  - ANGER [None]
  - HEADACHE [None]
